FAERS Safety Report 7005298-1 (Version None)
Quarter: 2010Q3

REPORT INFORMATION
  Report Type: 
  Country: None (occurrence: None)
  Receive Date: 20100921
  Receipt Date: 20100910
  Transmission Date: 20110219
  Serious: Yes (Hospitalization)
  Sender: FDA-Public Use
  Company Number: DE-ELI_LILLY_AND_COMPANY-DE201007001454

PATIENT
  Age: 63 Year
  Sex: Male
  Weight: 68.027 kg

DRUGS (3)
  1. EFFIENT [Suspect]
     Indication: PERCUTANEOUS CORONARY INTERVENTION
     Dosage: 60 MG, AS LOADING DOSE
     Route: 048
     Dates: start: 20100114, end: 20100114
  2. EFFIENT [Suspect]
     Dosage: 10 MG, DAILY (1/D)
     Route: 048
     Dates: start: 20100114, end: 20100507
  3. ASPIRIN [Concomitant]
     Dosage: UNK, UNKNOWN
     Route: 065

REACTIONS (6)
  - BONE PAIN [None]
  - BRONCHIAL HAEMORRHAGE [None]
  - BRONCHITIS [None]
  - EPISTAXIS [None]
  - HAEMORRHAGE [None]
  - INTESTINAL HAEMORRHAGE [None]
